FAERS Safety Report 8310445-5 (Version None)
Quarter: 2012Q2

REPORT INFORMATION
  Report Type: 
  Country: None (occurrence: None)
  Receive Date: 20120425
  Receipt Date: 20120411
  Transmission Date: 20120825
  Serious: Yes (Other)
  Sender: FDA-Public Use
  Company Number: CH-RANBAXY-2011RR-43480

PATIENT
  Age: 40 Year
  Sex: Female

DRUGS (2)
  1. AMOXICILLIN [Suspect]
     Indication: PNEUMONIA BACTERIAL
     Dosage: 3 G, UNK
     Dates: start: 20110128, end: 20110208
  2. LEVOFLOXACIN [Suspect]
     Indication: PNEUMONIA BACTERIAL
     Dosage: 500 MG, BID
     Route: 065
     Dates: start: 20110209, end: 20110215

REACTIONS (2)
  - MATERNAL EXPOSURE DURING PREGNANCY [None]
  - ABORTION INDUCED [None]
